FAERS Safety Report 9225407 (Version 2)
Quarter: 2013Q2

REPORT INFORMATION
  Report Type: Report from Study
  Country: GB (occurrence: GB)
  Receive Date: 20130411
  Receipt Date: 20130524
  Transmission Date: 20140414
  Serious: Yes (Death)
  Sender: FDA-Public Use
  Company Number: GB-ROCHE-1212901

PATIENT
  Sex: 0
  Weight: .78 kg

DRUGS (1)
  1. ALTEPLASE [Suspect]
     Indication: INTRAVENTRICULAR HAEMORRHAGE NEONATAL

REACTIONS (2)
  - Drug ineffective [Fatal]
  - Death [Fatal]
